FAERS Safety Report 10229174 (Version 2)
Quarter: 2014Q2

REPORT INFORMATION
  Report Type: Report from Study
  Country: CZ (occurrence: CZ)
  Receive Date: 20140611
  Receipt Date: 20140613
  Transmission Date: 20141212
  Serious: Yes (Hospitalization)
  Sender: FDA-Public Use
  Company Number: CZ-ROCHE-1416421

PATIENT
  Age: 63 Year
  Sex: Female
  Weight: 84.3 kg

DRUGS (17)
  1. RITUXIMAB [Suspect]
     Indication: B-CELL LYMPHOMA
     Dosage: RITUXIMAB IV 375MG/M2 EVERY 28 DAYS FOR 4 CYCLES; DATE OF DOSE PRIOR TO ONSET OF EVENT: 14/MAY/2014
     Route: 042
     Dates: start: 20140416
  2. RITUXIMAB [Suspect]
     Dosage: PART OF R-CHOP REGIMEN
     Route: 065
     Dates: start: 20080915, end: 20090120
  3. RITUXIMAB [Suspect]
     Dosage: 2 CYCLES
     Route: 065
     Dates: start: 200902, end: 200903
  4. RITUXIMAB [Suspect]
     Dosage: 8 CYCLES
     Route: 065
     Dates: start: 201204, end: 201301
  5. RITUXIMAB [Suspect]
     Route: 042
     Dates: start: 20140605
  6. BLINDED IDELALISIB [Suspect]
     Indication: B-CELL LYMPHOMA
     Dosage: DOSE INTERRUPTED ON 28/MAY/2014
     Route: 048
     Dates: start: 20140416, end: 20140528
  7. BLINDED IDELALISIB [Suspect]
     Dosage: DOSE INTERRUPTED ON 28/MAY/2014
     Route: 048
     Dates: start: 20140605
  8. BENDAMUSTINE [Suspect]
     Indication: B-CELL LYMPHOMA
     Dosage: BENDAMUSTINE 90MG/M2 FOR 2 CONSECUTIVE DAYS EVERY 28 DAYS FOR 4 CYCLES; DATE OF DOSE PRIOR TO ONSET
     Route: 042
     Dates: start: 20140416
  9. BENDAMUSTINE [Suspect]
     Route: 042
     Dates: start: 20140605
  10. DICLOFENAC SODIUM [Concomitant]
     Route: 065
     Dates: start: 2007, end: 20140523
  11. ALLOPURINOLUM [Concomitant]
     Route: 065
     Dates: start: 2013
  12. TRANDOLAPRIL [Concomitant]
     Route: 065
     Dates: start: 1999
  13. BETAHISTINE DIHYDROCHLORIDE [Concomitant]
     Route: 065
     Dates: start: 2010
  14. LEVOCETIRIZINE [Concomitant]
     Route: 065
     Dates: start: 20140427
  15. ACYCLOVIR [Concomitant]
     Route: 065
     Dates: start: 20140416
  16. ATORVASTATIN [Concomitant]
     Route: 065
     Dates: start: 2010
  17. SULFAMETHOXAZOLE/TRIMETHOPRIM [Concomitant]
     Route: 065
     Dates: start: 20140416

REACTIONS (1)
  - Dyspepsia [Recovered/Resolved]
